FAERS Safety Report 10479088 (Version 1)
Quarter: 2014Q3

REPORT INFORMATION
  Report Type: Spontaneous
  Country: US (occurrence: US)
  Receive Date: 20140926
  Receipt Date: 20140926
  Transmission Date: 20150326
  Serious: Yes (Death, Other)
  Sender: FDA-Public Use
  Company Number: PHEH2014US019117

PATIENT
  Age: 52 Year
  Sex: Female

DRUGS (15)
  1. FEMARA [Concomitant]
     Active Substance: LETROZOLE
  2. HERCEPTIN [Concomitant]
     Active Substance: TRASTUZUMAB
     Dates: start: 2009, end: 2011
  3. BENTYL [Concomitant]
     Active Substance: DICYCLOMINE HYDROCHLORIDE
     Dosage: 20 MG, UNK
     Dates: start: 2010
  4. MORPHINE [Concomitant]
     Active Substance: MORPHINE
     Dates: start: 2010, end: 2011
  5. PERCOCET [Concomitant]
     Active Substance: ACETAMINOPHEN\OXYCODONE HYDROCHLORIDE
     Dosage: 650 MG, UNK
     Dates: start: 2008
  6. AREDIA [Suspect]
     Active Substance: PAMIDRONATE DISODIUM
  7. NAVELBINE [Concomitant]
     Active Substance: VINORELBINE TARTRATE
  8. TAXOL [Concomitant]
     Active Substance: PACLITAXEL
  9. OXYCONTIN [Concomitant]
     Active Substance: OXYCODONE HYDROCHLORIDE
     Dosage: 80 MG, UNK
     Dates: start: 2010
  10. ZOMETA [Suspect]
     Active Substance: ZOLEDRONIC ACID
     Indication: BONE CANCER
     Route: 042
     Dates: start: 200710, end: 201212
  11. ARIMIDEX [Concomitant]
     Active Substance: ANASTROZOLE
  12. TAXOTERE [Concomitant]
     Active Substance: DOCETAXEL
  13. GEMZAR [Concomitant]
     Active Substance: GEMCITABINE HYDROCHLORIDE
  14. NOLVADEX//TAMOXIFEN [Concomitant]
  15. CHLORHEXIDINE [Concomitant]
     Active Substance: CHLORHEXIDINE
     Dosage: 473 ML, UNK
     Dates: start: 201104

REACTIONS (26)
  - Discomfort [Unknown]
  - Joint range of motion decreased [Unknown]
  - Oral infection [Unknown]
  - Oral disorder [Unknown]
  - Oral pain [Unknown]
  - Jaw disorder [Unknown]
  - Osteonecrosis of jaw [Unknown]
  - Metastases to liver [Unknown]
  - Dental caries [Unknown]
  - Burning sensation [Unknown]
  - Pain [Unknown]
  - Metastases to bone [Unknown]
  - Sinusitis [Unknown]
  - Gingival disorder [Unknown]
  - Abscess [Unknown]
  - Exostosis of jaw [Unknown]
  - Bone pain [Unknown]
  - Impaired healing [Unknown]
  - Fistula discharge [Unknown]
  - Death [Fatal]
  - Bone swelling [Unknown]
  - Pain in jaw [Unknown]
  - Exposed bone in jaw [Unknown]
  - Toothache [Unknown]
  - Periodontal disease [Unknown]
  - Paraesthesia [Unknown]

NARRATIVE: CASE EVENT DATE: 201007
